FAERS Safety Report 13860657 (Version 1)
Quarter: 2017Q3

REPORT INFORMATION
  Report Type: Spontaneous
  Country: CH (occurrence: CH)
  Receive Date: 20170811
  Receipt Date: 20170811
  Transmission Date: 20171127
  Serious: Yes (Hospitalization)
  Sender: FDA-Public Use
  Company Number: CH-JNJFOC-20170808497

PATIENT
  Age: 82 Year
  Sex: Male
  Weight: 68 kg

DRUGS (6)
  1. BISOPROLOL HEMIFUMARATE [Concomitant]
     Active Substance: BISOPROLOL FUMARATE
     Route: 048
  2. CRESTOR [Concomitant]
     Active Substance: ROSUVASTATIN CALCIUM
     Route: 048
  3. ENTRESTO [Concomitant]
     Active Substance: SACUBITRIL\VALSARTAN
     Route: 048
  4. XARELTO [Suspect]
     Active Substance: RIVAROXABAN
     Indication: PRODUCT USED FOR UNKNOWN INDICATION
     Route: 048
     Dates: end: 20170704
  5. MEPHANOL [Concomitant]
     Active Substance: ALLOPURINOL
     Route: 048
  6. TORASEMID SANDOZ [Concomitant]
     Active Substance: TORSEMIDE
     Route: 048

REACTIONS (4)
  - Anaemia [Recovering/Resolving]
  - Asthenia [Recovered/Resolved]
  - Gastrointestinal haemorrhage [Recovering/Resolving]
  - Melaena [Recovered/Resolved]

NARRATIVE: CASE EVENT DATE: 201706
